FAERS Safety Report 12312084 (Version 1)
Quarter: 2016Q2

REPORT INFORMATION
  Report Type: Spontaneous
  Country: US (occurrence: US)
  Receive Date: 20160427
  Receipt Date: 20160427
  Transmission Date: 20160815
  Serious: Yes (Other)
  Sender: FDA-Public Use
  Company Number: US-TEIKOKU PHARMA USA-TPU2016-00248

PATIENT
  Age: 75 Year
  Sex: Female
  Weight: 60.16 kg

DRUGS (11)
  1. OMEPRAZOLE. [Concomitant]
     Active Substance: OMEPRAZOLE
     Indication: PRECANCEROUS MUCOSAL LESION
     Route: 048
  2. VITAMIN D [Concomitant]
     Active Substance: CHOLECALCIFEROL
     Indication: PROPHYLAXIS
  3. LIDODERM [Suspect]
     Active Substance: LIDOCAINE
     Indication: ARTHRALGIA
  4. B6 [Concomitant]
     Active Substance: PYRIDOXINE HYDROCHLORIDE
     Indication: CEREBRAL DISORDER
     Route: 048
  5. VITAMIN B12 [Concomitant]
     Active Substance: CYANOCOBALAMIN
     Indication: CEREBRAL DISORDER
     Route: 048
  6. BACOPA [Concomitant]
     Indication: PHYTOTHERAPY
     Route: 048
  7. LIDODERM [Suspect]
     Active Substance: LIDOCAINE
     Indication: SPINAL COLUMN STENOSIS
     Dosage: USES 1-3 PATCHES TOPICALLY ON LOW BACK EVERY 12 HOURS AND SOMETIMES CUTS PATCHES IN HALF OR IN STRIP
     Route: 061
  8. ASPIRIN. [Concomitant]
     Active Substance: ASPIRIN
     Indication: PROPHYLAXIS
     Route: 048
  9. ANGELICA [Concomitant]
     Indication: PHYTOTHERAPY
  10. ASPIRIN WITH CAFFEINE [Concomitant]
     Indication: PAIN
  11. ALLEGRA [Concomitant]
     Active Substance: FEXOFENADINE HYDROCHLORIDE
     Indication: HYPERSENSITIVITY

REACTIONS (3)
  - Knee arthroplasty [Recovered/Resolved]
  - Underdose [Not Recovered/Not Resolved]
  - Meniscus operation [Recovered/Resolved]

NARRATIVE: CASE EVENT DATE: 201307
